FAERS Safety Report 18780728 (Version 1)
Quarter: 2021Q1

REPORT INFORMATION
  Report Type: Spontaneous
  Country: US (occurrence: US)
  Receive Date: 20210123
  Receipt Date: 20210123
  Transmission Date: 20210419
  Serious: No
  Sender: FDA-Public Use
  Company Number: None

PATIENT
  Age: 18 Year
  Sex: Female
  Weight: 56.25 kg

DRUGS (2)
  1. XOLOFT [Concomitant]
  2. DUPIXENT [Suspect]
     Active Substance: DUPILUMAB
     Indication: DERMATITIS ATOPIC
     Dosage: ?          QUANTITY:1 INJECTION(S);OTHER FREQUENCY:EVERY OTHER WEEK;OTHER ROUTE:INJECTION?
     Dates: start: 20210121, end: 20210122

REACTIONS (4)
  - Dehydration [None]
  - Abdominal discomfort [None]
  - Diarrhoea [None]
  - Impaired work ability [None]

NARRATIVE: CASE EVENT DATE: 20210121
